FAERS Safety Report 9647630 (Version 2)
Quarter: 2013Q4

REPORT INFORMATION
  Report Type: Spontaneous
  Country: ES (occurrence: ES)
  Receive Date: 20131028
  Receipt Date: 20131118
  Transmission Date: 20140711
  Serious: Yes (Hospitalization, Disabling, Other)
  Sender: FDA-Public Use
  Company Number: ES-009507513-1310ESP009762

PATIENT
  Age: 55 Year
  Sex: Female

DRUGS (1)
  1. REXER FLAS [Suspect]
     Dosage: DAILY DOSE: 30 MG
     Route: 048

REACTIONS (3)
  - Jejunostomy [Recovered/Resolved]
  - Intestinal fistula infection [Recovered/Resolved]
  - Chemical burn of gastrointestinal tract [Not Recovered/Not Resolved]
